FAERS Safety Report 5009325-2 (Version None)
Quarter: 2006Q2

REPORT INFORMATION
  Report Type: 
  Country: None (occurrence: None)
  Receive Date: 20060524
  Receipt Date: 20060519
  Transmission Date: 20061013
  Serious: Yes (Life-Threatening, Hospitalization, Other)
  Sender: FDA-Public Use
  Company Number: US-RB-3342-2006

PATIENT
  Sex: Female

DRUGS (9)
  1. SUBOXONE [Suspect]
     Indication: PAIN
     Dosage: PATIENT TAKES 4 MG TID AND THEN 8 MG DAILY
     Route: 060
     Dates: start: 20051001, end: 20060518
  2. SUBOXONE [Suspect]
     Route: 060
     Dates: start: 20060519
  3. LACTULOSE [Concomitant]
     Indication: CONSTIPATION
  4. CIPROFLOXACIN [Concomitant]
     Route: 048
  5. AUGMENTIN [Concomitant]
     Route: 048
  6. MEDICINALPRODUCT NOT SPECIFIED BY SENDER [Concomitant]
     Route: 048
  7. MEDICINALPRODUCT NOT SPECIFIED BY SENDER [Concomitant]
  8. DEXAMETHASONE [Concomitant]
     Dates: end: 20060515
  9. MORPHINE [Concomitant]
     Indication: PAIN

REACTIONS (2)
  - CRYPTOGENIC CIRRHOSIS [None]
  - VARICES OESOPHAGEAL [None]
